FAERS Safety Report 12526150 (Version 1)
Quarter: 2016Q3

REPORT INFORMATION
  Report Type: Spontaneous
  Country: US (occurrence: None)
  Receive Date: 20160701
  Receipt Date: 20160701
  Transmission Date: 20161109
  Serious: Yes (Hospitalization, Disabling, Other)
  Sender: FDA-Public Use
  Company Number: None

PATIENT
  Age: 82 Year
  Weight: 68.04 kg

DRUGS (1)
  1. LISINOPRIL. [Suspect]
     Active Substance: LISINOPRIL
     Indication: BLOOD PRESSURE MEASUREMENT
     Route: 048

REACTIONS (4)
  - Asthenia [None]
  - Abasia [None]
  - Swollen tongue [None]
  - Obstructive airways disorder [None]

NARRATIVE: CASE EVENT DATE: 20160520
